FAERS Safety Report 8479981-5 (Version None)
Quarter: 2012Q2

REPORT INFORMATION
  Report Type: 
  Country: None (occurrence: None)
  Receive Date: 20120629
  Receipt Date: 20120622
  Transmission Date: 20120825
  Serious: Yes (Life-Threatening, Other)
  Sender: FDA-Public Use
  Company Number: US-MPIJNJ-2012-04466

PATIENT
  Age: 65 Year
  Sex: Male

DRUGS (3)
  1. THALIDOMIDE [Suspect]
     Indication: MULTIPLE MYELOMA
  2. VELCADE [Suspect]
     Indication: MULTIPLE MYELOMA
  3. DEXAMETHASONE [Suspect]
     Indication: MULTIPLE MYELOMA

REACTIONS (6)
  - FACTOR VIII INHIBITION [None]
  - ORTHOSTATIC HYPOTENSION [None]
  - JOINT SWELLING [None]
  - PERICARDIAL EFFUSION [None]
  - JOINT RANGE OF MOTION DECREASED [None]
  - ARTHRALGIA [None]
